FAERS Safety Report 10648847 (Version 1)
Quarter: 2014Q4

REPORT INFORMATION
  Report Type: Spontaneous
  Country: US (occurrence: None)
  Receive Date: 20141211
  Receipt Date: 20141211
  Transmission Date: 20150529
  Serious: Yes (Hospitalization)
  Sender: FDA-Public Use
  Company Number: None

PATIENT
  Age: 59 Year
  Sex: Male
  Weight: 89.9 kg

DRUGS (1)
  1. NAPROXEN. [Suspect]
     Active Substance: NAPROXEN
     Indication: ARTHRITIS
     Route: 048
     Dates: start: 20140618, end: 20141017

REACTIONS (4)
  - Gastric haemorrhage [None]
  - Anaemia [None]
  - Haemorrhoids [None]
  - Gastritis erosive [None]

NARRATIVE: CASE EVENT DATE: 20141017
